FAERS Safety Report 4926688-4 (Version None)
Quarter: 2006Q1

REPORT INFORMATION
  Report Type: 
  Country: None (occurrence: None)
  Receive Date: 20060228
  Receipt Date: 20050526
  Transmission Date: 20060701
  Serious: No
  Sender: FDA-Public Use
  Company Number: US-GLAXOSMITHKLINE-A0560279A

PATIENT
  Age: 15 Year

DRUGS (3)
  1. LAMICTAL [Suspect]
     Indication: BIPOLAR DISORDER
     Dosage: 250MG PER DAY
     Route: 048
     Dates: start: 20050215, end: 20050524
  2. ADDERALL XR 10 [Concomitant]
  3. EFFEXOR [Concomitant]

REACTIONS (1)
  - ACNE [None]
